FAERS Safety Report 17394737 (Version 2)
Quarter: 2020Q1

REPORT INFORMATION
  Report Type: Spontaneous
  Country: DE (occurrence: DE)
  Receive Date: 20200210
  Receipt Date: 20200225
  Transmission Date: 20200409
  Serious: Yes (Other)
  Sender: FDA-Public Use
  Company Number: DE-BRISTOL-MYERS SQUIBB COMPANY-BMS-2019-118083

PATIENT
  Age: 53 Year
  Sex: Male
  Weight: 105 kg

DRUGS (1)
  1. SPRYCEL [Suspect]
     Active Substance: DASATINIB
     Indication: CHRONIC MYELOID LEUKAEMIA
     Dosage: 100 MILLIGRAM, QD
     Route: 048
     Dates: start: 20161115

REACTIONS (10)
  - Personality change [Unknown]
  - Performance status decreased [Unknown]
  - Erythema [Not Recovered/Not Resolved]
  - Diarrhoea [Recovered/Resolved]
  - Headache [Recovered/Resolved]
  - Flushing [Recovered/Resolved]
  - Aggression [Recovered/Resolved]
  - Cough [Unknown]
  - Mental disorder [Unknown]
  - Night sweats [Unknown]

NARRATIVE: CASE EVENT DATE: 201911
